FAERS Safety Report 24310218 (Version 2)
Quarter: 2024Q4

REPORT INFORMATION
  Report Type: Spontaneous
  Country: JP (occurrence: JP)
  Receive Date: 20240912
  Receipt Date: 20241001
  Transmission Date: 20250114
  Serious: Yes (Hospitalization, Other)
  Sender: MERCK
  Company Number: JP-MSD-2409JPN001008J

PATIENT
  Age: 82 Year
  Sex: Male
  Weight: 60 kg

DRUGS (9)
  1. KEYTRUDA [Suspect]
     Active Substance: PEMBROLIZUMAB
     Indication: Lip and/or oral cavity cancer
     Dosage: 200 MILLIGRAM, Q3W
     Route: 041
     Dates: start: 20240702, end: 20240820
  2. JANUVIA [Suspect]
     Active Substance: SITAGLIPTIN PHOSPHATE
     Indication: Diabetes mellitus
     Dosage: 50 MILLIGRAM, QD
     Route: 048
     Dates: start: 20240820
  3. ENFORTUMAB VEDOTIN [Suspect]
     Active Substance: ENFORTUMAB VEDOTIN
     Indication: Lip and/or oral cavity cancer
     Dosage: 1.25 MILLIGRAM/KILOGRAM
     Route: 065
     Dates: start: 20240702, end: 20240820
  4. AZILSARTAN KAMEDOXOMIL [Concomitant]
     Active Substance: AZILSARTAN KAMEDOXOMIL
     Indication: Hypertension
     Dosage: 20 MILLIGRAM, QD
     Route: 048
     Dates: start: 2004
  5. ROSUVASTATIN CALCIUM [Concomitant]
     Active Substance: ROSUVASTATIN CALCIUM
     Indication: Hyperlipidaemia
     Dosage: 2.5 MILLIGRAM, QD
     Route: 048
     Dates: start: 2004
  6. ENSURE [Concomitant]
     Active Substance: AMINO ACIDS\DEXTROSE\ELECTROLYTES NOS\SOYBEAN OIL\VITAMINS
     Indication: Nutritional supplementation
     Dosage: 1 CAN/TIME, PRN
     Route: 048
     Dates: start: 20240524
  7. MIRABEGRON [Concomitant]
     Active Substance: MIRABEGRON
     Indication: Pollakiuria
     Dosage: 50 MILLIGRAM, QD
     Route: 048
     Dates: start: 202304
  8. ESZOPICLONE [Concomitant]
     Active Substance: ESZOPICLONE
     Indication: Insomnia
     Dosage: 2 MILLIGRAM, PRN
     Route: 048
     Dates: start: 20240626
  9. BENZETHONIUM CHLORIDE [Concomitant]
     Active Substance: BENZETHONIUM CHLORIDE
     Indication: Infection prophylaxis
     Dosage: AS NEEDED, PRN
     Route: 061
     Dates: start: 202312

REACTIONS (7)
  - Diabetes mellitus [Unknown]
  - Pharyngeal inflammation [Recovered/Resolved]
  - Malignant neoplasm progression [Unknown]
  - Pneumonia [Unknown]
  - Tumour pain [Unknown]
  - Wound complication [Unknown]
  - Pruritus [Unknown]

NARRATIVE: CASE EVENT DATE: 20240101
